FAERS Safety Report 4883523-0 (Version None)
Quarter: 2006Q1

REPORT INFORMATION
  Report Type: 
  Country: None (occurrence: None)
  Receive Date: 20060118
  Receipt Date: 20050801
  Transmission Date: 20060701
  Serious: Yes (Hospitalization)
  Sender: FDA-Public Use
  Company Number: US-MERCK-0508USA00767

PATIENT
  Age: 73 Year
  Sex: Female
  Weight: 64 kg

DRUGS (4)
  1. VIOXX [Suspect]
     Indication: ARTHRITIS
     Route: 048
     Dates: start: 20000101, end: 20020201
  2. VIOXX [Suspect]
     Route: 048
     Dates: start: 20020201, end: 20020501
  3. VIOXX [Suspect]
     Indication: BACK PAIN
     Route: 048
     Dates: start: 20000101, end: 20020201
  4. VIOXX [Suspect]
     Route: 048
     Dates: start: 20020201, end: 20020501

REACTIONS (8)
  - BACK PAIN [None]
  - BLINDNESS [None]
  - CEREBROVASCULAR ACCIDENT [None]
  - DEMENTIA [None]
  - INFECTION [None]
  - MENTAL DISORDER [None]
  - MENTAL STATUS CHANGES [None]
  - SYNCOPE [None]
